FAERS Safety Report 12935748 (Version 1)
Quarter: 2016Q4

REPORT INFORMATION
  Report Type: Report from Study
  Country: PT (occurrence: PT)
  Receive Date: 20161114
  Receipt Date: 20161114
  Transmission Date: 20170207
  Serious: Yes (Hospitalization)
  Sender: FDA-Public Use
  Company Number: PT-ROCHE-1848840

PATIENT

DRUGS (3)
  1. TOCILIZUMAB [Suspect]
     Active Substance: TOCILIZUMAB
     Indication: RHEUMATOID ARTHRITIS
     Route: 042
  2. TOCILIZUMAB [Suspect]
     Active Substance: TOCILIZUMAB
     Indication: RHEUMATOID ARTHRITIS
     Route: 058
  3. TOCILIZUMAB [Suspect]
     Active Substance: TOCILIZUMAB
     Route: 058

REACTIONS (8)
  - Cystitis [Unknown]
  - Vulvovaginal mycotic infection [Unknown]
  - Cholecystitis [Unknown]
  - Off label use [Unknown]
  - Tinnitus [Unknown]
  - Tracheobronchitis [Unknown]
  - Tooth abscess [Unknown]
  - Otitis media acute [Unknown]
